FAERS Safety Report 4701721-3 (Version None)
Quarter: 2005Q2

REPORT INFORMATION
  Report Type: 
  Country: None (occurrence: None)
  Receive Date: 20050627
  Receipt Date: 20050616
  Transmission Date: 20051028
  Serious: Yes (Hospitalization)
  Sender: FDA-Public Use
  Company Number: 2004084378

PATIENT
  Sex: Male

DRUGS (2)
  1. VIRACEPT [Suspect]
     Indication: HIV INFECTION
     Dosage: ORAL
     Route: 064
     Dates: start: 20040429
  2. COMBIVIR [Suspect]
     Indication: HIV INFECTION
     Dosage: ORAL
     Route: 064
     Dates: start: 20040429

REACTIONS (6)
  - ASCITES [None]
  - CAESAREAN SECTION [None]
  - DRUG EXPOSURE DURING PREGNANCY [None]
  - FOETAL DISORDER [None]
  - GASTROINTESTINAL DISORDER [None]
  - MECONIUM PERITONITIS [None]
